FAERS Safety Report 8094278-3 (Version None)
Quarter: 2012Q1

REPORT INFORMATION
  Report Type: 
  Country: None (occurrence: None)
  Receive Date: 20120126
  Receipt Date: 20120113
  Transmission Date: 20120608
  Serious: Yes (Other)
  Sender: FDA-Public Use
  Company Number: 2012MA000907

PATIENT
  Age: 79 Year
  Sex: Female

DRUGS (6)
  1. ZOLOFT [Concomitant]
  2. LORAZEPAM [Concomitant]
  3. CLOTRIMAZOLE [Suspect]
     Indication: VAGINAL INFECTION
     Dosage: 1 DF;HS;VAG
     Route: 067
     Dates: start: 20110818, end: 20110820
  4. CAPTOPRIL [Concomitant]
  5. LASIX [Concomitant]
  6. GLUCOPHAGE [Concomitant]

REACTIONS (3)
  - DERMATITIS ALLERGIC [None]
  - HYPERTENSION [None]
  - ANXIETY [None]
